FAERS Safety Report 7225060-4 (Version None)
Quarter: 2011Q1

REPORT INFORMATION
  Report Type: 
  Country: None (occurrence: None)
  Receive Date: 20110107
  Receipt Date: 20110107
  Transmission Date: 20110831
  Serious: Yes (Death)
  Sender: FDA-Public Use
  Company Number: None

PATIENT
  Age: 71 Year
  Sex: Female
  Weight: 56.6996 kg

DRUGS (7)
  1. CALCIUM CHANNEL BLOCKERS [Concomitant]
  2. LEVAQUIN [Concomitant]
  3. FENTANYL [Concomitant]
  4. VERSED [Concomitant]
  5. DIFLUCAN [Concomitant]
  6. ALBUTEROL [Suspect]
     Indication: COUGH
     Dosage: WITHIN 30 MINUTES ENDOTRACHEAL
     Route: 007
     Dates: start: 20100102, end: 20100102
  7. BETA BLOCKERS [Concomitant]

REACTIONS (3)
  - CARDIAC ARREST [None]
  - DYSPNOEA [None]
  - RESPIRATORY DISTRESS [None]
